FAERS Safety Report 7406781-7 (Version None)
Quarter: 2011Q2

REPORT INFORMATION
  Report Type: 
  Country: None (occurrence: None)
  Receive Date: 20110411
  Receipt Date: 20110330
  Transmission Date: 20111010
  Serious: Yes (Other)
  Sender: FDA-Public Use
  Company Number: PHHY2011DK26066

PATIENT
  Sex: Female
  Weight: 70 kg

DRUGS (4)
  1. ALENDRONATE SANDOZ [Suspect]
  2. CITALOPRAM [Concomitant]
     Indication: DEPRESSION
     Dates: start: 20080716
  3. PULMICORT [Interacting]
     Indication: ASTHMA
  4. PULMICORT [Interacting]
     Indication: BRONCHITIS
     Dosage: 200 ?G
     Route: 045
     Dates: start: 19960618

REACTIONS (1)
  - ENAMEL ANOMALY [None]
